FAERS Safety Report 14258580 (Version 2)
Quarter: 2017Q4

REPORT INFORMATION
  Report Type: Spontaneous
  Country: US (occurrence: US)
  Receive Date: 20171207
  Receipt Date: 20171211
  Transmission Date: 20180321
  Serious: Yes (Other)
  Sender: FDA-Public Use
  Company Number: US-PFIZER INC-2017519938

PATIENT
  Age: 89 Year
  Sex: Male

DRUGS (1)
  1. FLECTOR [Suspect]
     Active Substance: DICLOFENAC EPOLAMINE
     Indication: PAIN
     Dosage: UNK

REACTIONS (2)
  - Drug ineffective [Unknown]
  - Thrombosis [Unknown]
